FAERS Safety Report 8801054 (Version 2)
Quarter: 2014Q1

REPORT INFORMATION
  Report Type: Report from Study
  Country: VE (occurrence: VE)
  Receive Date: 20120920
  Receipt Date: 20140124
  Transmission Date: 20141002
  Serious: Yes (Hospitalization)
  Sender: FDA-Public Use
  Company Number: VE-ROCHE-1132494

PATIENT
  Sex: Female

DRUGS (6)
  1. XOLAIR [Suspect]
     Indication: BLOOD IMMUNOGLOBULIN E INCREASED
     Route: 058
     Dates: start: 201102, end: 201204
  2. XOLAIR [Suspect]
     Indication: ASTHMA
     Route: 058
     Dates: start: 201204, end: 201204
  3. XOLAIR [Suspect]
     Route: 058
  4. XOLAIR [Suspect]
     Route: 058
     Dates: start: 201307, end: 201307
  5. NASONEX [Concomitant]
     Route: 065
     Dates: start: 2002
  6. SODIUM CHLORIDE [Concomitant]
     Route: 065
     Dates: start: 201204

REACTIONS (2)
  - Nasal polyps [Recovering/Resolving]
  - Blood immunoglobulin E increased [Not Recovered/Not Resolved]
